FAERS Safety Report 13948235 (Version 1)
Quarter: 2017Q3

REPORT INFORMATION
  Report Type: Spontaneous
  Country: US (occurrence: US)
  Receive Date: 20170907
  Receipt Date: 20170907
  Transmission Date: 20171128
  Serious: Yes (Other)
  Sender: FDA-Public Use
  Company Number: None

PATIENT
  Age: 51 Year
  Sex: Female

DRUGS (9)
  1. ISOSORBIDE MONONITRATE ER [Concomitant]
     Active Substance: ISOSORBIDE MONONITRATE
  2. OXYCODONE [Concomitant]
     Active Substance: OXYCODONE
  3. METHYLPHENIDATE. [Concomitant]
     Active Substance: METHYLPHENIDATE
  4. ASPIRIN. [Concomitant]
     Active Substance: ASPIRIN
  5. CAPECITABINE. [Suspect]
     Active Substance: CAPECITABINE
     Indication: NEOPLASM MALIGNANT
     Route: 048
     Dates: start: 20170504, end: 20170907
  6. DULOXETINE DR [Concomitant]
     Active Substance: DULOXETINE
  7. NAPROXEN. [Concomitant]
     Active Substance: NAPROXEN
  8. ONDANSETRON [Concomitant]
     Active Substance: ONDANSETRON
  9. METOPROLOL ER [Concomitant]
     Active Substance: METOPROLOL SUCCINATE

REACTIONS (2)
  - Gingival bleeding [None]
  - Vaginal haemorrhage [None]

NARRATIVE: CASE EVENT DATE: 20170907
